FAERS Safety Report 6539760-2 (Version None)
Quarter: 2010Q1

REPORT INFORMATION
  Report Type: 
  Country: None (occurrence: None)
  Receive Date: 20100115
  Receipt Date: 20100114
  Transmission Date: 20100710
  Serious: Yes (Hospitalization)
  Sender: FDA-Public Use
  Company Number: JP-ROXANE LABORATORIES, INC.-2010-RO-00034RO

PATIENT
  Age: 31 Year
  Sex: Female

DRUGS (7)
  1. METHOTREXATE [Suspect]
     Indication: POLYMYOSITIS
  2. PREDNISOLONE [Suspect]
     Indication: POLYMYOSITIS
     Dosage: 60 MG
  3. PREDNISOLONE [Suspect]
  4. PREDNISOLONE [Suspect]
     Dosage: 20 MG
     Dates: start: 20040601
  5. ACYCLOVIR [Concomitant]
     Indication: HEPATITIS VIRAL
     Dosage: 750 MG
  6. ACYCLOVIR [Concomitant]
     Dosage: 1500 MG
  7. VARICELLA ZOSTER VIRUS IMMUNE GLOBULIN [Concomitant]
     Indication: HEPATITIS VIRAL
     Dosage: 5 G
     Route: 042

REACTIONS (3)
  - DISSEMINATED INTRAVASCULAR COAGULATION [None]
  - HEPATITIS VIRAL [None]
  - PROTHROMBIN TIME SHORTENED [None]
